FAERS Safety Report 16017495 (Version 2)
Quarter: 2019Q2

REPORT INFORMATION
  Report Type: Report from Study
  Country: US (occurrence: US)
  Receive Date: 20190228
  Receipt Date: 20190403
  Transmission Date: 20190711
  Serious: Yes (Other)
  Sender: FDA-Public Use
  Company Number: PHHO2019US002175

PATIENT
  Age: 52 Year
  Sex: Female
  Weight: 84 kg

DRUGS (4)
  1. GSK1120212 [Suspect]
     Active Substance: TRAMETINIB
     Indication: OVARIAN CANCER
     Dosage: 2 MG, 1-14 DAYS
     Route: 048
     Dates: start: 20190104
  2. NAVITOCLAX [Suspect]
     Active Substance: NAVITOCLAX
     Dosage: 250 MG, 8-28 DAYS
     Route: 048
     Dates: start: 20190201, end: 20190213
  3. GSK1120212 [Suspect]
     Active Substance: TRAMETINIB
     Dosage: 2 MG, 1-14 DAYS
     Route: 048
     Dates: start: 20190201, end: 20190213
  4. NAVITOCLAX [Suspect]
     Active Substance: NAVITOCLAX
     Indication: OVARIAN CANCER
     Dosage: 250 MG, 8-28 DAYS
     Route: 048
     Dates: start: 20190104

REACTIONS (1)
  - Neutrophil count decreased [Not Recovered/Not Resolved]

NARRATIVE: CASE EVENT DATE: 20190214
